FAERS Safety Report 17376115 (Version 1)
Quarter: 2020Q1

REPORT INFORMATION
  Report Type: Spontaneous
  Country: US (occurrence: US)
  Receive Date: 20200205
  Receipt Date: 20200205
  Transmission Date: 20200409
  Serious: Yes (Disabling)
  Sender: FDA-Public Use
  Company Number: None

PATIENT
  Age: 71 Year
  Sex: Female
  Weight: 67.5 kg

DRUGS (5)
  1. CELEXA [Concomitant]
     Active Substance: CITALOPRAM HYDROBROMIDE
  2. PRAVASTATIN. [Concomitant]
     Active Substance: PRAVASTATIN
  3. VIT B12 AND VIT D [Concomitant]
  4. SUPREP BOWEL PREP [Suspect]
     Active Substance: MAGNESIUM SULFATE\POTASSIUM SULFATE\SODIUM SULFATE
     Indication: BOWEL PREPARATION
     Dosage: ?          OTHER STRENGTH:OUNCES;QUANTITY:1 OUNCE(S);OTHER FREQUENCY:TWICE;?
     Route: 048
     Dates: start: 20200202, end: 20200203
  5. MULTIVITAMIN [Concomitant]
     Active Substance: VITAMINS

REACTIONS (9)
  - Feeding disorder [None]
  - Abdominal distension [None]
  - Dizziness [None]
  - Vomiting [None]
  - Adverse drug reaction [None]
  - Headache [None]
  - Malaise [None]
  - Nausea [None]
  - Product use complaint [None]

NARRATIVE: CASE EVENT DATE: 20200203
